FAERS Safety Report 6574100-4 (Version None)
Quarter: 2010Q1

REPORT INFORMATION
  Report Type: 
  Country: None (occurrence: None)
  Receive Date: 20100208
  Receipt Date: 20100201
  Transmission Date: 20100710
  Serious: Yes (Other)
  Sender: FDA-Public Use
  Company Number: GB-BAYER-201014392GPV

PATIENT
  Age: 24 Year
  Sex: Female
  Weight: 49 kg

DRUGS (2)
  1. MOXIFLOXACIN HCL [Suspect]
     Indication: LATENT TUBERCULOSIS
     Route: 048
     Dates: start: 20091202, end: 20091213
  2. PYRAZINAMIDE [Concomitant]
     Indication: LATENT TUBERCULOSIS
     Route: 048
     Dates: start: 20091202, end: 20091213

REACTIONS (5)
  - ABDOMINAL PAIN [None]
  - CHILLS [None]
  - NAUSEA [None]
  - PYREXIA [None]
  - VOMITING [None]
